FAERS Safety Report 17709868 (Version 1)
Quarter: 2020Q2

REPORT INFORMATION
  Report Type: Spontaneous
  Country: US (occurrence: US)
  Receive Date: 20200427
  Receipt Date: 20200427
  Transmission Date: 20200714
  Serious: No
  Sender: FDA-Public Use
  Company Number: US-ASTRAZENECA-2020SE52847

PATIENT
  Sex: Male
  Weight: 117.9 kg

DRUGS (5)
  1. ATENOLOL. [Concomitant]
     Active Substance: ATENOLOL
     Indication: CARDIAC DISORDER
     Route: 048
  2. LEXAPRO [Concomitant]
     Active Substance: ESCITALOPRAM OXALATE
     Route: 048
  3. FASENRA [Suspect]
     Active Substance: BENRALIZUMAB
     Route: 058
  4. PRILOSEC [Suspect]
     Active Substance: OMEPRAZOLE MAGNESIUM
     Route: 048
  5. LOVASTATIN. [Concomitant]
     Active Substance: LOVASTATIN
     Route: 048

REACTIONS (6)
  - Lung infiltration [Unknown]
  - Pyrexia [Unknown]
  - Lymphadenopathy [Unknown]
  - Respiratory disorder [Unknown]
  - Eosinophil count increased [Unknown]
  - Wheezing [Unknown]
